FAERS Safety Report 15493604 (Version 1)
Quarter: 2018Q4

REPORT INFORMATION
  Report Type: Spontaneous
  Country: US (occurrence: US)
  Receive Date: 20181012
  Receipt Date: 20181012
  Transmission Date: 20190205
  Serious: No
  Sender: FDA-Public Use
  Company Number: US-SHIRE-US201839090

PATIENT
  Sex: Female

DRUGS (1)
  1. XIIDRA [Suspect]
     Active Substance: LIFITEGRAST
     Indication: DRY EYE
     Dosage: 1 GTT, 2X/DAY:BID
     Route: 047

REACTIONS (5)
  - Instillation site pain [Unknown]
  - Instillation site lacrimation [Unknown]
  - Superficial injury of eye [Unknown]
  - Instillation site pruritus [Unknown]
  - Drug ineffective [Unknown]
